FAERS Safety Report 18145319 (Version 1)
Quarter: 2020Q3

REPORT INFORMATION
  Report Type: Spontaneous
  Country: US (occurrence: US)
  Receive Date: 20200813
  Receipt Date: 20200813
  Transmission Date: 20201103
  Serious: No
  Sender: FDA-Public Use
  Company Number: None

PATIENT
  Age: 66 Year
  Sex: Female
  Weight: 60.75 kg

DRUGS (6)
  1. LEVOTHYROXINE. [Concomitant]
     Active Substance: LEVOTHYROXINE
  2. COLACE [Concomitant]
     Active Substance: DOCUSATE SODIUM
  3. TUMERIC [Concomitant]
     Active Substance: HERBALS\TURMERIC
  4. LUMIFY [Suspect]
     Active Substance: BRIMONIDINE TARTRATE
     Indication: OCULAR HYPERAEMIA
     Dosage: ?          QUANTITY:1 DROP(S);?
     Route: 047
     Dates: start: 20200709, end: 20200709
  5. LUNISTA [Concomitant]
  6. CRESTOR [Concomitant]
     Active Substance: ROSUVASTATIN CALCIUM

REACTIONS (2)
  - Photopsia [None]
  - Vitreous floaters [None]

NARRATIVE: CASE EVENT DATE: 20200709
